FAERS Safety Report 8521734-3 (Version None)
Quarter: 2012Q3

REPORT INFORMATION
  Report Type: 
  Country: None (occurrence: None)
  Receive Date: 20120719
  Receipt Date: 20120716
  Transmission Date: 20120928
  Serious: Yes (Death)
  Sender: FDA-Public Use
  Company Number: PHHY2012US060906

PATIENT

DRUGS (3)
  1. CISPLATIN [Suspect]
  2. FLUOROURACIL [Suspect]
  3. RADIATION THERAPY [Suspect]
     Dosage: 16.2 GY, UNK

REACTIONS (2)
  - PULMONARY HAEMORRHAGE [None]
  - ACUTE RESPIRATORY FAILURE [None]
